FAERS Safety Report 23910976 (Version 1)
Quarter: 2024Q2

REPORT INFORMATION
  Report Type: Spontaneous
  Country: US (occurrence: US)
  Receive Date: 20240528
  Receipt Date: 20240528
  Transmission Date: 20240715
  Serious: No
  Sender: FDA-Public Use
  Company Number: US-AVADEL CNS PHARMACEUTICALS, LLC-2024AVA00640

PATIENT
  Age: 60 Year
  Sex: Male

DRUGS (21)
  1. LUMRYZ [Suspect]
     Active Substance: SODIUM OXYBATE
     Dosage: UNK
     Dates: start: 202404, end: 202404
  2. LUMRYZ [Suspect]
     Active Substance: SODIUM OXYBATE
     Indication: Narcolepsy
     Dosage: 6 G, ONCE NIGHTLY. TAKE 2 HOURS AFTER EATING
     Dates: start: 202404
  3. ADZENYS XR-ODT [Concomitant]
     Active Substance: AMPHETAMINE
  4. SPRAVATO [Concomitant]
     Active Substance: ESKETAMINE
  5. PROBIOTIC 10 B [Concomitant]
  6. PRASTERONE [Concomitant]
     Active Substance: PRASTERONE
  7. VITAMIN D2-VITAMIN K1 [Concomitant]
  8. LEVOMEFOLIC ACID [Concomitant]
     Active Substance: LEVOMEFOLIC ACID
  9. VITAMIN B COMPLEX [Concomitant]
     Active Substance: CYANOCOBALAMIN\DEXPANTHENOL\NIACINAMIDE\PYRIDOXINE HYDROCHLORIDE\RIBOFLAVIN 5^-PHOSPHATE SODIUM\THIA
  10. VITAMINS [Concomitant]
     Active Substance: VITAMINS
  11. FISH OIL [Concomitant]
     Active Substance: FISH OIL
  12. ONDANSETRON HYDROCHLORIDE [Concomitant]
     Active Substance: ONDANSETRON HYDROCHLORIDE
  13. LIDOCAINE AND PRILOCAINE [Concomitant]
     Active Substance: LIDOCAINE\PRILOCAINE
  14. LIDOCAINE [Concomitant]
     Active Substance: LIDOCAINE
  15. CIALIS [Concomitant]
     Active Substance: TADALAFIL
  16. DICLOFENAC SODIUM [Concomitant]
     Active Substance: DICLOFENAC\DICLOFENAC SODIUM
  17. LORAZEPAM [Concomitant]
     Active Substance: LORAZEPAM
  18. PROPRANOLOL HYDROCHLORIDE [Concomitant]
     Active Substance: PROPRANOLOL HYDROCHLORIDE
  19. LAMICTAL XR [Concomitant]
     Active Substance: LAMOTRIGINE
  20. TIAGABINE HYDROCHLORIDE [Concomitant]
     Active Substance: TIAGABINE HYDROCHLORIDE
  21. CRITICAL DIGESTION [Concomitant]

REACTIONS (1)
  - Therapeutic product effect incomplete [Not Recovered/Not Resolved]

NARRATIVE: CASE EVENT DATE: 20240401
